FAERS Safety Report 22235951 (Version 1)
Quarter: 2023Q2

REPORT INFORMATION
  Report Type: Spontaneous
  Country: US (occurrence: US)
  Receive Date: 20230420
  Receipt Date: 20230420
  Transmission Date: 20230722
  Serious: No
  Sender: FDA-Public Use
  Company Number: US-BAUSCHBL-2023BNL003156

PATIENT
  Age: 73 Year
  Sex: Female

DRUGS (3)
  1. DEXAMETHASONE\NEOMYCIN\POLYMYXIN B SULFATE [Suspect]
     Active Substance: DEXAMETHASONE\NEOMYCIN\POLYMYXIN B SULFATE
     Indication: Eye infection
     Route: 047
     Dates: start: 20230410
  2. WATER [Suspect]
     Active Substance: WATER
     Indication: Routine health maintenance
     Route: 047
     Dates: start: 20230409
  3. ARTIFICIAL TEARS [Concomitant]
     Indication: Product used for unknown indication

REACTIONS (5)
  - Conjunctivitis [Unknown]
  - Instillation site discharge [Unknown]
  - Instillation site pruritus [Unknown]
  - Instillation site swelling [Unknown]
  - Instillation site erythema [Unknown]

NARRATIVE: CASE EVENT DATE: 20230409
